FAERS Safety Report 6739015-7 (Version None)
Quarter: 2010Q2

REPORT INFORMATION
  Report Type: 
  Country: None (occurrence: None)
  Receive Date: 20100524
  Receipt Date: 20100524
  Transmission Date: 20101027
  Serious: Yes (Death)
  Sender: FDA-Public Use
  Company Number: None

PATIENT
  Age: 52 Year
  Sex: Male
  Weight: 85.2762 kg

DRUGS (1)
  1. ATRIPLA [Suspect]
     Dosage: DAILY PO
     Route: 048
     Dates: start: 20091220, end: 20100203

REACTIONS (3)
  - COMPLETED SUICIDE [None]
  - DEPRESSION [None]
  - PERSONALITY CHANGE [None]
